FAERS Safety Report 5133022-6 (Version None)
Quarter: 2006Q4

REPORT INFORMATION
  Report Type: 
  Country: None (occurrence: None)
  Receive Date: 20061023
  Receipt Date: 20061019
  Transmission Date: 20070319
  Serious: Yes (Hospitalization)
  Sender: FDA-Public Use
  Company Number: FR-BRISTOL-MYERS SQUIBB COMPANY-13548987

PATIENT
  Sex: Female

DRUGS (1)
  1. KENACORT [Suspect]
     Route: 030

REACTIONS (3)
  - NAUSEA [None]
  - PALPITATIONS [None]
  - URTICARIA [None]
